FAERS Safety Report 9712628 (Version 1)
Quarter: 2013Q4

REPORT INFORMATION
  Report Type: Spontaneous
  Country: US (occurrence: US)
  Receive Date: 20131126
  Receipt Date: 20131126
  Transmission Date: 20140711
  Serious: No
  Sender: FDA-Public Use
  Company Number: US-BRISTOL-MYERS SQUIBB COMPANY-19208891

PATIENT
  Age: 63 Year
  Sex: Female
  Weight: 126.07 kg

DRUGS (3)
  1. BYDUREON [Suspect]
     Indication: TYPE 2 DIABETES MELLITUS
     Dosage: NO OF DOSES-3
     Dates: start: 201305, end: 201306
  2. GLIPIZIDE [Concomitant]
     Route: 048
  3. METFORMIN [Concomitant]
     Route: 048

REACTIONS (3)
  - Injection site nodule [Not Recovered/Not Resolved]
  - Injection site erythema [Not Recovered/Not Resolved]
  - Injection site pruritus [Not Recovered/Not Resolved]
